FAERS Safety Report 16914265 (Version 1)
Quarter: 2019Q4

REPORT INFORMATION
  Report Type: Spontaneous
  Country: US (occurrence: US)
  Receive Date: 20191014
  Receipt Date: 20191014
  Transmission Date: 20200122
  Serious: No
  Sender: FDA-Public Use
  Company Number: US-C B FLEET CO INC-201904-US-001081

PATIENT
  Age: 69 Year
  Sex: Female

DRUGS (1)
  1. MONISTAT 3 COMBINATION PACK TRIPLE ACTION [Suspect]
     Active Substance: MICONAZOLE NITRATE
     Indication: FUNGAL INFECTION
     Dosage: DOSAGE UNKNOWN
     Route: 067

REACTIONS (2)
  - Muscle spasms [Recovered/Resolved]
  - Application site pain [Recovered/Resolved]
